FAERS Safety Report 15408434 (Version 1)
Quarter: 2018Q3

REPORT INFORMATION
  Report Type: Spontaneous
  Country: US (occurrence: US)
  Receive Date: 20180920
  Receipt Date: 20180920
  Transmission Date: 20181010
  Serious: No
  Sender: FDA-Public Use
  Company Number: US-AKRON, INC.-2055175

PATIENT
  Sex: Female

DRUGS (1)
  1. KETOTIFEN FUMARATE? KETOTIFEN FUMARATE SOLUTION/ DROPS [Suspect]
     Active Substance: KETOTIFEN FUMARATE
     Route: 047

REACTIONS (2)
  - Eye irritation [Recovered/Resolved]
  - Drug ineffective [Recovered/Resolved]
